FAERS Safety Report 13735089 (Version 1)
Quarter: 2017Q3

REPORT INFORMATION
  Report Type: Spontaneous
  Country: US (occurrence: US)
  Receive Date: 20170710
  Receipt Date: 20170710
  Transmission Date: 20171127
  Serious: No
  Sender: FDA-Public Use
  Company Number: US-THE MEDICINES COMPANY-US-MDCO-16-00294

PATIENT

DRUGS (2)
  1. ONDASETRON [Concomitant]
     Active Substance: ONDANSETRON
     Indication: PROPHYLAXIS OF NAUSEA AND VOMITING
     Route: 042
  2. IONSYS [Suspect]
     Active Substance: FENTANYL HYDROCHLORIDE
     Indication: PROCEDURAL PAIN
     Dosage: NOT REPORTED
     Route: 062

REACTIONS (2)
  - Nausea [Unknown]
  - Vomiting [Unknown]
